FAERS Safety Report 4424319-3 (Version None)
Quarter: 2004Q3

REPORT INFORMATION
  Report Type: 
  Country: None (occurrence: None)
  Receive Date: 20040809
  Receipt Date: 20040729
  Transmission Date: 20050211
  Serious: Yes (Hospitalization)
  Sender: FDA-Public Use
  Company Number: 2004225972US

PATIENT

DRUGS (1)
  1. FLAGYL [Suspect]
     Dates: start: 20040701

REACTIONS (2)
  - BLOOD CREATININE INCREASED [None]
  - MALAISE [None]
